FAERS Safety Report 8828583 (Version 2)
Quarter: 2015Q2

REPORT INFORMATION
  Report Type: Report from Study
  Country: US (occurrence: US)
  Receive Date: 20121005
  Receipt Date: 20150629
  Transmission Date: 20150821
  Serious: Yes (Death)
  Sender: FDA-Public Use
  Company Number: US-ROCHE-1131408

PATIENT
  Sex: Female

DRUGS (6)
  1. NOVANTRONE [Concomitant]
     Active Substance: MITOXANTRONE HYDROCHLORIDE
  2. DEXAMETHASONE. [Concomitant]
     Active Substance: DEXAMETHASONE
  3. RITUXAN [Suspect]
     Active Substance: RITUXIMAB
     Indication: MALIGNANT LYMPHOID NEOPLASM
     Route: 065
     Dates: start: 20000223
  4. FLUDARABINE [Concomitant]
     Active Substance: FLUDARABINE PHOSPHATE
  5. MARINOL (UNITED STATES) [Concomitant]
  6. RITUXAN [Suspect]
     Active Substance: RITUXIMAB
     Route: 065

REACTIONS (11)
  - Death [Fatal]
  - Anaemia [Recovered/Resolved]
  - Decreased appetite [Unknown]
  - Asthenia [Unknown]
  - Diabetes mellitus [Unknown]
  - Contusion [Unknown]
  - Fatigue [Unknown]
  - Weight decreased [Unknown]
  - Neutropenia [Recovered/Resolved]
  - Purpura [Unknown]
  - Arthralgia [Unknown]
